FAERS Safety Report 19666283 (Version 1)
Quarter: 2021Q3

REPORT INFORMATION
  Report Type: Spontaneous
  Country: US (occurrence: US)
  Receive Date: 20210806
  Receipt Date: 20210806
  Transmission Date: 20211014
  Serious: No
  Sender: FDA-Public Use
  Company Number: None

PATIENT
  Age: 41 Year
  Sex: Female
  Weight: 90 kg

DRUGS (4)
  1. ITRACONAZOLE/100MG CAPSULE TAKEN ONCE A DAY WITH FOOD [Suspect]
     Active Substance: ITRACONAZOLE
     Indication: FUNGAL INFECTION
     Dates: start: 20210805, end: 20210806
  2. ARMOUR THYROID [Concomitant]
     Active Substance: THYROID, PORCINE
  3. MULTIVITAMIN [Concomitant]
     Active Substance: VITAMINS
  4. VITAMIN D3 [Concomitant]
     Active Substance: CHOLECALCIFEROL

REACTIONS (2)
  - Dizziness [None]
  - Headache [None]

NARRATIVE: CASE EVENT DATE: 20210806
